FAERS Safety Report 7578032-4 (Version None)
Quarter: 2011Q2

REPORT INFORMATION
  Report Type: 
  Country: None (occurrence: None)
  Receive Date: 20110628
  Receipt Date: 20110616
  Transmission Date: 20111010
  Serious: Yes (Death, Hospitalization)
  Sender: FDA-Public Use
  Company Number: US-PFIZER INC-2011119705

PATIENT
  Age: 67 Year
  Sex: Female
  Weight: 54.4 kg

DRUGS (5)
  1. IRON [Concomitant]
  2. MULTI-VITAMINS [Concomitant]
  3. BEVACIZUMAB [Suspect]
     Indication: OVARIAN CANCER
     Dosage: 540 MG, SINGLE
     Route: 042
     Dates: start: 20110415, end: 20110415
  4. COUMADIN [Concomitant]
  5. TORISEL [Suspect]
     Indication: OVARIAN CANCER
     Dosage: 25 MG, SINGLE
     Route: 042
     Dates: start: 20110415, end: 20110415

REACTIONS (1)
  - RESPIRATORY FAILURE [None]
